FAERS Safety Report 15018180 (Version 1)
Quarter: 2018Q2

REPORT INFORMATION
  Report Type: Spontaneous
  Country: IT (occurrence: IT)
  Receive Date: 20180615
  Receipt Date: 20180615
  Transmission Date: 20180711
  Serious: Yes (Life-Threatening, Hospitalization)
  Sender: FDA-Public Use
  Company Number: IT-MYLANLABS-2018M1041172

PATIENT
  Age: 3 Day
  Sex: Female

DRUGS (1)
  1. IBUPROFEN. [Suspect]
     Active Substance: IBUPROFEN
     Indication: PATENT DUCTUS ARTERIOSUS REPAIR
     Dosage: 10 MG/KG, FIRST DOSE
     Route: 065

REACTIONS (3)
  - Neonatal respiratory acidosis [Unknown]
  - Persistent foetal circulation [Recovered/Resolved]
  - Respiratory failure [Recovered/Resolved]
